FAERS Safety Report 6862097-9 (Version None)
Quarter: 2010Q3

REPORT INFORMATION
  Report Type: 
  Country: None (occurrence: None)
  Receive Date: 20100721
  Receipt Date: 20100707
  Transmission Date: 20110219
  Serious: Yes (Hospitalization, Other)
  Sender: FDA-Public Use
  Company Number: US-ELI_LILLY_AND_COMPANY-US201007002068

PATIENT
  Sex: Female

DRUGS (14)
  1. FORTEO [Suspect]
     Indication: OSTEOPOROSIS
     Dosage: 20 UG, DAILY (1/D)
  2. ROBAXIN [Concomitant]
  3. VALIUM [Concomitant]
  4. DILAUDID [Concomitant]
  5. OXYCONTIN [Concomitant]
  6. LYRICA [Concomitant]
  7. PREVACID [Concomitant]
  8. CRESTOR [Concomitant]
  9. ZETIA [Concomitant]
  10. PROZAC [Concomitant]
  11. TIAZAC                             /00489702/ [Concomitant]
  12. ACCUPRIL [Concomitant]
  13. FOLIC ACID W/VITAMIN B12 [Concomitant]
  14. COLACE [Concomitant]

REACTIONS (2)
  - DEVICE FAILURE [None]
  - SPINAL FUSION SURGERY [None]
